FAERS Safety Report 9179992 (Version 2)
Quarter: 2013Q2

REPORT INFORMATION
  Report Type: Spontaneous
  Country: FR (occurrence: FR)
  Receive Date: 20130321
  Receipt Date: 20130506
  Transmission Date: 20140414
  Serious: Yes (Hospitalization, Other)
  Sender: FDA-Public Use
  Company Number: FR-PFIZER INC-2013086964

PATIENT
  Age: 59 Year
  Sex: Male

DRUGS (15)
  1. ARACYTINE [Suspect]
     Indication: BONE MARROW TRANSPLANT
     Dosage: 700 MG, UNK
     Route: 042
     Dates: start: 20130124, end: 20130127
  2. BICNU [Suspect]
     Indication: BONE MARROW TRANSPLANT
     Dosage: UNK
     Dates: start: 20130123, end: 20130123
  3. ETOPOSIDE MYLAN [Suspect]
     Indication: BONE MARROW TRANSPLANT
     Dosage: UNK
     Route: 042
     Dates: start: 20130124, end: 20130127
  4. ALKERAN [Suspect]
     Indication: BONE MARROW TRANSPLANT
     Dosage: UNK
     Route: 042
     Dates: start: 20130128, end: 20130128
  5. HEPARIN SODIUM [Concomitant]
  6. ACUPAN [Concomitant]
  7. ZOPHREN [Concomitant]
  8. DELURSAN [Concomitant]
  9. VITAMIN K1 [Concomitant]
  10. TIORFAN [Concomitant]
  11. PRIMPERAN [Concomitant]
  12. SPASFON [Concomitant]
  13. ARESTAL [Concomitant]
  14. VITAMIN B1 [Concomitant]
  15. VITAMIN B6 [Concomitant]

REACTIONS (5)
  - Aplasia [Recovering/Resolving]
  - Sepsis [Recovered/Resolved]
  - Diarrhoea [Recovered/Resolved]
  - Colitis [Unknown]
  - Chest pain [Unknown]
